FAERS Safety Report 6806961-5 (Version None)
Quarter: 2010Q2

REPORT INFORMATION
  Report Type: 
  Country: None (occurrence: None)
  Receive Date: 20100629
  Receipt Date: 20080606
  Transmission Date: 20101027
  Serious: No
  Sender: FDA-Public Use
  Company Number: US-PFIZER INC-2008048640

PATIENT
  Sex: Female
  Weight: 59.87 kg

DRUGS (2)
  1. ALDACTONE [Suspect]
     Indication: ACNE
     Dates: start: 20080601
  2. ALDACTONE [Suspect]
     Indication: OFF LABEL USE

REACTIONS (4)
  - DIZZINESS [None]
  - FATIGUE [None]
  - MUSCLE SPASMS [None]
  - PARAESTHESIA [None]
